FAERS Safety Report 6741306-0 (Version None)
Quarter: 2010Q2

REPORT INFORMATION
  Report Type: 
  Country: None (occurrence: None)
  Receive Date: 20100526
  Receipt Date: 20100514
  Transmission Date: 20101027
  Serious: Yes (Other)
  Sender: FDA-Public Use
  Company Number: JP-PFIZER INC-2010050073

PATIENT
  Age: 57 Year
  Sex: Female
  Weight: 56 kg

DRUGS (4)
  1. ALDACTONE [Suspect]
     Indication: PLEURAL EFFUSION
     Dosage: 25 MG, 1X/DAY
     Dates: start: 20100320, end: 20100420
  2. LASIX [Concomitant]
     Indication: OEDEMA
     Dosage: 40 MG, DAILY
     Route: 048
     Dates: start: 20100315, end: 20100408
  3. AMINOLEBAN [Concomitant]
     Dosage: UNK
     Route: 042
     Dates: start: 20100330, end: 20100414
  4. ALBUMIN HUMAN [Concomitant]
     Dosage: UNK
     Route: 042
     Dates: start: 20100327, end: 20100401

REACTIONS (2)
  - PLATELET COUNT DECREASED [None]
  - WHITE BLOOD CELL COUNT DECREASED [None]
